FAERS Safety Report 11350256 (Version 1)
Quarter: 2015Q3

REPORT INFORMATION
  Report Type: Spontaneous
  Country: US (occurrence: None)
  Receive Date: 20150806
  Receipt Date: 20150806
  Transmission Date: 20151125
  Serious: Yes (Disabling)
  Sender: FDA-Public Use
  Company Number: None

PATIENT
  Age: 55 Year
  Sex: Female
  Weight: 57.15 kg

DRUGS (3)
  1. LEVAQUIN [Suspect]
     Active Substance: LEVOFLOXACIN
     Indication: SINUSITIS
     Dosage: 1 PILL
     Route: 048
     Dates: start: 20080318, end: 20080324
  2. BOTOX [Concomitant]
     Active Substance: ONABOTULINUMTOXINA
  3. BUTALBYTAL [Concomitant]

REACTIONS (3)
  - Fatigue [None]
  - Tendonitis [None]
  - Blister [None]
